FAERS Safety Report 11471650 (Version 2)
Quarter: 2016Q1

REPORT INFORMATION
  Report Type: Spontaneous
  Country: US (occurrence: US)
  Receive Date: 20150908
  Receipt Date: 20160107
  Transmission Date: 20160525
  Serious: No
  Sender: FDA-Public Use
  Company Number: US-009507513-1509USA002729

PATIENT
  Age: 94 Year
  Sex: Female

DRUGS (2)
  1. NITRO-DUR [Suspect]
     Active Substance: NITROGLYCERIN
     Dosage: 0.3 UNK, UNK
  2. NITRO-DUR [Suspect]
     Active Substance: NITROGLYCERIN
     Indication: PROPHYLAXIS
     Dosage: 0.4 MG, UNK
     Route: 062

REACTIONS (1)
  - Fatigue [Not Recovered/Not Resolved]

NARRATIVE: CASE EVENT DATE: 201508
